FAERS Safety Report 4905576-3 (Version None)
Quarter: 2006Q1

REPORT INFORMATION
  Report Type: 
  Country: None (occurrence: None)
  Receive Date: 20060203
  Receipt Date: 20060130
  Transmission Date: 20060701
  Serious: Yes (Hospitalization)
  Sender: FDA-Public Use
  Company Number: 2005BI021678

PATIENT
  Age: 55 Year
  Sex: Female
  Weight: 80.7403 kg

DRUGS (2)
  1. AVONEX LYOPHILIZED [Suspect]
     Indication: MULTIPLE SCLEROSIS
     Dosage: 30 UG; QW; IM
     Route: 030
     Dates: start: 19960101, end: 20030101
  2. AVONEX LIQUID [Suspect]
     Indication: MULTIPLE SCLEROSIS
     Dosage: 30 UG; QW; IM
     Route: 030
     Dates: start: 20030101

REACTIONS (5)
  - CROHN'S DISEASE [None]
  - DEEP VEIN THROMBOSIS [None]
  - HIATUS HERNIA [None]
  - POST PROCEDURAL COMPLICATION [None]
  - POST PROCEDURAL PULMONARY EMBOLISM [None]
